FAERS Safety Report 4296998-5 (Version None)
Quarter: 2004Q1

REPORT INFORMATION
  Report Type: 
  Country: None (occurrence: None)
  Receive Date: 20040217
  Receipt Date: 20040209
  Transmission Date: 20041129
  Serious: Yes (Hospitalization)
  Sender: FDA-Public Use
  Company Number: PHNU2004DE00833

PATIENT
  Sex: Female

DRUGS (3)
  1. METHERGINE [Suspect]
     Indication: ENDOCERVICAL CURETTAGE
     Route: 042
     Dates: start: 20040206, end: 20040206
  2. METHERGINE [Suspect]
     Route: 048
     Dates: start: 20040206, end: 20040207
  3. METHERGINE [Suspect]
     Route: 048
     Dates: start: 20040208, end: 20040208

REACTIONS (6)
  - AGITATION [None]
  - ANXIETY [None]
  - CARDIOVASCULAR DISORDER [None]
  - PANIC ATTACK [None]
  - PERIPHERAL VASCULAR DISORDER [None]
  - TREMOR [None]
